FAERS Safety Report 16714239 (Version 1)
Quarter: 2019Q3

REPORT INFORMATION
  Report Type: Spontaneous
  Country: US (occurrence: US)
  Receive Date: 20190819
  Receipt Date: 20190819
  Transmission Date: 20191004
  Serious: No
  Sender: FDA-Public Use
  Company Number: US-ZYDUS-036819

PATIENT
  Age: 74 Year
  Sex: Female

DRUGS (1)
  1. CHOLESTYRAMINE. [Suspect]
     Active Substance: CHOLESTYRAMINE
     Indication: IRRITABLE BOWEL SYNDROME
     Route: 048
     Dates: start: 201904

REACTIONS (5)
  - Product physical consistency issue [Not Recovered/Not Resolved]
  - Product use in unapproved indication [Not Recovered/Not Resolved]
  - Product taste abnormal [Not Recovered/Not Resolved]
  - Product residue present [Not Recovered/Not Resolved]
  - Product solubility abnormal [Not Recovered/Not Resolved]

NARRATIVE: CASE EVENT DATE: 201904
